FAERS Safety Report 6229754-9 (Version None)
Quarter: 2009Q2

REPORT INFORMATION
  Report Type: 
  Country: None (occurrence: None)
  Receive Date: 20090615
  Receipt Date: 20090604
  Transmission Date: 20091009
  Serious: Yes (Hospitalization)
  Sender: FDA-Public Use
  Company Number: PHHY2009TH22225

PATIENT
  Age: 61 Year
  Sex: Male

DRUGS (1)
  1. ZOLEDRONIC ACID [Suspect]
     Dosage: 4 MG, QMO

REACTIONS (11)
  - BONE DISORDER [None]
  - IMPAIRED HEALING [None]
  - ORAL CAVITY FISTULA [None]
  - OSTEOLYSIS [None]
  - OSTEONECROSIS [None]
  - PAIN [None]
  - PATHOLOGICAL FRACTURE [None]
  - POST PROCEDURAL HAEMORRHAGE [None]
  - SURGERY [None]
  - SWELLING [None]
  - THROMBOCYTOPENIA [None]
